FAERS Safety Report 26145593 (Version 1)
Quarter: 2025Q4

REPORT INFORMATION
  Report Type: Report from Study
  Country: JP (occurrence: JP)
  Receive Date: 20251211
  Receipt Date: 20251211
  Transmission Date: 20260118
  Serious: Yes (Other)
  Sender: ELI LILLY AND COMPANY
  Company Number: JP-ELI_LILLY_AND_COMPANY-JP202512011325

PATIENT
  Sex: Male

DRUGS (1)
  1. KISUNLA [Suspect]
     Active Substance: DONANEMAB-AZBT
     Indication: Product used for unknown indication
     Dosage: UNK
     Route: 041
     Dates: start: 20250630, end: 20250730

REACTIONS (4)
  - Cognitive disorder [Unknown]
  - Cerebral infarction [Unknown]
  - Brain oedema [Unknown]
  - Cerebral haemorrhage [Unknown]
